FAERS Safety Report 26191752 (Version 1)
Quarter: 2025Q4

REPORT INFORMATION
  Report Type: Report from Study
  Country: US (occurrence: US)
  Receive Date: 20251223
  Receipt Date: 20251223
  Transmission Date: 20260117
  Serious: Yes (Death)
  Sender: JOHNSON AND JOHNSON
  Company Number: US-JNJFOC-20251226860

PATIENT
  Age: 66 Year
  Sex: Female

DRUGS (1)
  1. CILTACABTAGENE AUTOLEUCEL [Suspect]
     Active Substance: CILTACABTAGENE AUTOLEUCEL
     Indication: Plasma cell myeloma
     Dosage: TOTAL NO: OF CELLS ADMINISTERED: 28.7, TOTAL CELLS EXPONENT VALUE:6, NO: OF LINES PRIOR TO CARVYKTI: 4

REACTIONS (3)
  - Pulmonary alveolar haemorrhage [Fatal]
  - Cardiac failure [Fatal]
  - Renal failure [Fatal]
